FAERS Safety Report 6650028-6 (Version None)
Quarter: 2010Q1

REPORT INFORMATION
  Report Type: 
  Country: None (occurrence: None)
  Receive Date: 20100325
  Receipt Date: 20100319
  Transmission Date: 20100710
  Serious: Yes (Death, Other)
  Sender: FDA-Public Use
  Company Number: TR-ELI_LILLY_AND_COMPANY-TR201003005547

PATIENT
  Age: 64 Year
  Sex: Female

DRUGS (2)
  1. HUMULIN 70/30 [Suspect]
     Indication: DIABETES MELLITUS
     Dosage: 28 IU, EACH MORNING
     Route: 058
     Dates: start: 20000101
  2. HUMULIN 70/30 [Suspect]
     Dosage: 18 IU, EACH EVENING
     Route: 058
     Dates: start: 20000101

REACTIONS (5)
  - CARDIAC FAILURE [None]
  - DEATH [None]
  - HEART VALVE OPERATION [None]
  - HEPATIC FAILURE [None]
  - PULMONARY OEDEMA [None]
